FAERS Safety Report 7818132-4 (Version None)
Quarter: 2011Q4

REPORT INFORMATION
  Report Type: 
  Country: None (occurrence: None)
  Receive Date: 20111017
  Receipt Date: 20111007
  Transmission Date: 20120403
  Serious: Yes (Other)
  Sender: FDA-Public Use
  Company Number: CA-ROCHE-752503

PATIENT
  Sex: Female
  Weight: 54 kg

DRUGS (13)
  1. COD LIVER OIL [Concomitant]
  2. PANTOPRAZOLE SODIUM [Concomitant]
  3. FOLIC ACID [Concomitant]
  4. CALCIUM CARBONATE [Concomitant]
     Dosage: ONE TABLET AT BREAKFAST AND ONE AT SUPPER
     Route: 048
  5. SULFASALAZINE [Concomitant]
     Route: 048
  6. PREDNISONE [Concomitant]
  7. METHOTREXATE [Concomitant]
     Route: 048
  8. ACTEMRA [Suspect]
     Dosage: DOSE LEVEL: 8 MG/KG
     Route: 042
  9. ACTEMRA [Suspect]
     Dosage: DOSE LEVEL: 8 MG/KG
     Route: 042
  10. ACTEMRA [Suspect]
     Dosage: DOSE LEVEL: 8 MG/KG
     Route: 042
  11. TYLENOL-500 [Concomitant]
  12. ACTEMRA [Suspect]
     Indication: RHEUMATOID ARTHRITIS
     Route: 042
  13. ACTEMRA [Suspect]
     Dosage: DOSE LEVEL: 8 MG/KG
     Route: 042

REACTIONS (12)
  - WHITE BLOOD CELL COUNT DECREASED [None]
  - NASAL CONGESTION [None]
  - ASPARTATE AMINOTRANSFERASE INCREASED [None]
  - MEAN CELL HAEMOGLOBIN CONCENTRATION DECREASED [None]
  - MEAN CELL VOLUME DECREASED [None]
  - ABDOMINAL DISCOMFORT [None]
  - COLON CANCER [None]
  - ANKLE FRACTURE [None]
  - MEAN CELL HAEMOGLOBIN DECREASED [None]
  - DIZZINESS [None]
  - RHINORRHOEA [None]
  - BLOOD BILIRUBIN INCREASED [None]
